FAERS Safety Report 5325690-0 (Version None)
Quarter: 2007Q2

REPORT INFORMATION
  Report Type: 
  Country: None (occurrence: None)
  Receive Date: 20070515
  Receipt Date: 20070503
  Transmission Date: 20071010
  Serious: Yes (Other)
  Sender: FDA-Public Use
  Company Number: US-PFIZER INC-2007036961

PATIENT
  Sex: Female
  Weight: 63.636 kg

DRUGS (2)
  1. CHANTIX [Suspect]
     Indication: SMOKING CESSATION THERAPY
  2. FOSAMAX [Concomitant]

REACTIONS (10)
  - ABNORMAL DREAMS [None]
  - ANXIETY [None]
  - DIZZINESS [None]
  - HEADACHE [None]
  - HOT FLUSH [None]
  - INSOMNIA [None]
  - LOSS OF CONSCIOUSNESS [None]
  - MUSCULAR WEAKNESS [None]
  - SEDATION [None]
  - VISION BLURRED [None]
